FAERS Safety Report 8394730-7 (Version None)
Quarter: 2012Q2

REPORT INFORMATION
  Report Type: 
  Country: None (occurrence: None)
  Receive Date: 20120525
  Receipt Date: 20120525
  Transmission Date: 20120825
  Serious: Yes (Other)
  Sender: FDA-Public Use
  Company Number: None

PATIENT
  Age: 59 Year
  Sex: Male
  Weight: 72.5755 kg

DRUGS (1)
  1. CLINDAMYCIN [Suspect]
     Indication: ARTHRITIS INFECTIVE
     Dosage: 600MG 3 TIMES DAY PO
     Route: 048
     Dates: start: 20120301, end: 20120413

REACTIONS (1)
  - CLOSTRIDIUM TEST POSITIVE [None]
